FAERS Safety Report 18045744 (Version 1)
Quarter: 2020Q3

REPORT INFORMATION
  Report Type: Report from Study
  Country: CA (occurrence: CA)
  Receive Date: 20200720
  Receipt Date: 20200720
  Transmission Date: 20201103
  Serious: Yes (Death, Hospitalization, Other)
  Sender: FDA-Public Use
  Company Number: CA-JNJFOC-20200607971

PATIENT
  Age: 61 Year
  Sex: Female
  Weight: 111.3 kg

DRUGS (1)
  1. REMICADE [Suspect]
     Active Substance: INFLIXIMAB
     Indication: CROHN^S DISEASE
     Route: 042
     Dates: start: 20120816

REACTIONS (7)
  - Hepatic cirrhosis [Not Recovered/Not Resolved]
  - Product use issue [Unknown]
  - Acute kidney injury [Unknown]
  - Bacteraemia [Not Recovered/Not Resolved]
  - Death [Fatal]
  - Off label use [Unknown]
  - Hypoxia [Unknown]

NARRATIVE: CASE EVENT DATE: 20120816
